FAERS Safety Report 25690769 (Version 1)
Quarter: 2025Q3

REPORT INFORMATION
  Report Type: Spontaneous
  Country: US (occurrence: US)
  Receive Date: 20250818
  Receipt Date: 20250818
  Transmission Date: 20251021
  Serious: Yes (Other)
  Sender: COOPERSURGICAL
  Company Number: US-COOPERSURGICAL, INC.-2025CPS006048

PATIENT
  Age: 30 Year
  Sex: Female
  Weight: 77.098 kg

DRUGS (1)
  1. PARAGARD T 380A [Suspect]
     Active Substance: COPPER
     Route: 015
     Dates: start: 20131029

REACTIONS (16)
  - Surgery [Recovered/Resolved]
  - Device breakage [Not Recovered/Not Resolved]
  - Foreign body in reproductive tract [Not Recovered/Not Resolved]
  - Complication of device removal [Not Recovered/Not Resolved]
  - Embedded device [Not Recovered/Not Resolved]
  - Vulvovaginal pain [Unknown]
  - Emotional distress [Unknown]
  - Dyspareunia [Recovered/Resolved]
  - Unintentional medical device removal [Recovered/Resolved]
  - Intentional medical device removal by patient [Recovered/Resolved]
  - Abnormal uterine bleeding [Unknown]
  - Muscle spasms [Unknown]
  - Intermenstrual bleeding [Unknown]
  - Pain [Unknown]
  - Abdominal pain lower [Unknown]
  - Vaginal haemorrhage [Recovered/Resolved]

NARRATIVE: CASE EVENT DATE: 20220326
